FAERS Safety Report 22267500 (Version 13)
Quarter: 2025Q3

REPORT INFORMATION
  Report Type: Spontaneous
  Country: US (occurrence: US)
  Receive Date: 20230429
  Receipt Date: 20250905
  Transmission Date: 20251020
  Serious: Yes (Other)
  Sender: PFIZER
  Company Number: US-PFIZER INC-PV202300075171

PATIENT
  Age: 62 Year
  Sex: Female

DRUGS (3)
  1. CIBINQO [Suspect]
     Active Substance: ABROCITINIB
     Indication: Dermatitis atopic
     Route: 048
  2. CIBINQO [Suspect]
     Active Substance: ABROCITINIB
     Dosage: 200 MG, 1X/DAY
     Route: 048
  3. CIBINQO [Suspect]
     Active Substance: ABROCITINIB
     Dosage: 100 MG DAILY
     Route: 048

REACTIONS (7)
  - Pneumonia [Unknown]
  - Drug ineffective [Unknown]
  - Product dispensing error [Unknown]
  - Insomnia [Not Recovered/Not Resolved]
  - Condition aggravated [Unknown]
  - Illness [Unknown]
  - Aphonia [Unknown]

NARRATIVE: CASE EVENT DATE: 20230101
